FAERS Safety Report 11399460 (Version 1)
Quarter: 2015Q3

REPORT INFORMATION
  Report Type: Spontaneous
  Country: AU (occurrence: AU)
  Receive Date: 20150820
  Receipt Date: 20150820
  Transmission Date: 20151125
  Serious: Yes (Other)
  Sender: FDA-Public Use
  Company Number: AU-PFIZER INC-2015272324

PATIENT
  Sex: Male

DRUGS (1)
  1. LYRICA [Suspect]
     Active Substance: PREGABALIN
     Indication: POLYMYALGIA RHEUMATICA
     Dosage: 300 MG, 2X/DAY

REACTIONS (7)
  - Dry mouth [Unknown]
  - Diplopia [Unknown]
  - Coordination abnormal [Unknown]
  - Ear discomfort [Unknown]
  - Dizziness [Unknown]
  - Weight increased [Unknown]
  - Deafness unilateral [Unknown]

NARRATIVE: CASE EVENT DATE: 20150812
